FAERS Safety Report 10364026 (Version 1)
Quarter: 2014Q3

REPORT INFORMATION
  Report Type: Spontaneous
  Country: DK (occurrence: DK)
  Receive Date: 20140805
  Receipt Date: 20140805
  Transmission Date: 20150326
  Serious: Yes (Hospitalization)
  Sender: FDA-Public Use
  Company Number: PHHY2014DK093713

PATIENT
  Age: 31 Year
  Sex: Female

DRUGS (2)
  1. MALONETTA [Concomitant]
     Active Substance: ETHINYL ESTRADIOL\LEVONORGESTREL
  2. PANCILLIN [Suspect]
     Active Substance: PENICILLIN
     Indication: OTITIS MEDIA ACUTE
     Dosage: 660 MG, TID
     Route: 048
     Dates: start: 20140220, end: 20140225

REACTIONS (3)
  - Pruritus [Recovered/Resolved]
  - Rash [Recovered/Resolved]
  - Malaise [Recovered/Resolved]

NARRATIVE: CASE EVENT DATE: 20140225
